FAERS Safety Report 12369870 (Version 1)
Quarter: 2016Q2

REPORT INFORMATION
  Report Type: Spontaneous
  Country: US (occurrence: None)
  Receive Date: 20160513
  Receipt Date: 20160513
  Transmission Date: 20160815
  Serious: Yes (Other)
  Sender: FDA-Public Use
  Company Number: None

PATIENT
  Age: 83 Year
  Sex: Female
  Weight: 54.43 kg

DRUGS (3)
  1. CLINDAMYCIN [Suspect]
     Active Substance: CLINDAMYCIN\CLINDAMYCIN PHOSPHATE
     Indication: URINARY TRACT INFECTION
     Route: 048
     Dates: start: 20160504, end: 20160512
  2. TUMS [Concomitant]
     Active Substance: CALCIUM CARBONATE
  3. VALTREX [Suspect]
     Active Substance: VALACYCLOVIR HYDROCHLORIDE
     Indication: HERPES ZOSTER
     Dosage: 21 TABLET(S) THREE TIMES A DAY TAKEN BY MOUTH
     Route: 048
     Dates: start: 20160502, end: 20160509

REACTIONS (4)
  - Fatigue [None]
  - Pollakiuria [None]
  - Disease recurrence [None]
  - Herpes zoster [None]

NARRATIVE: CASE EVENT DATE: 20160505
